FAERS Safety Report 14673090 (Version 3)
Quarter: 2018Q3

REPORT INFORMATION
  Report Type: Spontaneous
  Country: US (occurrence: US)
  Receive Date: 20180323
  Receipt Date: 20180821
  Transmission Date: 20181010
  Serious: Yes (Other)
  Sender: FDA-Public Use
  Company Number: US-BAYER-2018-057038

PATIENT
  Age: 29 Year
  Sex: Female
  Weight: 88.25 kg

DRUGS (2)
  1. METFORMIN [Suspect]
     Active Substance: METFORMIN HYDROCHLORIDE
     Dosage: 500 MG, TID
     Route: 048
  2. MIRENA [Suspect]
     Active Substance: LEVONORGESTREL
     Indication: CONTRACEPTION
     Dosage: 20 MCG/24HR, CONT
     Route: 015
     Dates: start: 20180227, end: 20180314

REACTIONS (4)
  - Device dislocation [None]
  - Device difficult to use [None]
  - Procedural pain [None]
  - Post procedural discomfort [None]

NARRATIVE: CASE EVENT DATE: 20180227
